FAERS Safety Report 9370028 (Version 6)
Quarter: 2014Q2

REPORT INFORMATION
  Report Type: Report from Study
  Country: GB (occurrence: GB)
  Receive Date: 20130626
  Receipt Date: 20140405
  Transmission Date: 20141212
  Serious: No
  Sender: FDA-Public Use
  Company Number: GB-ROCHE-1241770

PATIENT
  Age: 87 Year
  Sex: Female

DRUGS (2)
  1. RANIBIZUMAB [Suspect]
     Indication: PRODUCT USED FOR UNKNOWN INDICATION
     Route: 050
     Dates: start: 20091001, end: 20130918
  2. RANIBIZUMAB [Suspect]
     Route: 050
     Dates: start: 20130918, end: 20130918

REACTIONS (4)
  - Angle closure glaucoma [Recovered/Resolved]
  - Eye pain [Unknown]
  - Nasopharyngitis [Unknown]
  - Corneal opacity [Recovered/Resolved]
